FAERS Safety Report 25272454 (Version 6)
Quarter: 2025Q4

REPORT INFORMATION
  Report Type: Spontaneous
  Country: US (occurrence: US)
  Receive Date: 20250506
  Receipt Date: 20251117
  Transmission Date: 20260118
  Serious: No
  Sender: BRISTOL-MYERS SQUIBB COMPANY
  Company Number: US-BRISTOL-MYERS SQUIBB COMPANY-2025-058326

PATIENT
  Age: 76 Year
  Sex: Female

DRUGS (8)
  1. ORENCIA [Suspect]
     Active Substance: ABATACEPT
     Indication: Rheumatoid arthritis
     Route: 058
     Dates: start: 202305
  2. ORENCIA [Suspect]
     Active Substance: ABATACEPT
     Route: 058
  3. ORENCIA [Suspect]
     Active Substance: ABATACEPT
     Route: 058
  4. ORENCIA [Suspect]
     Active Substance: ABATACEPT
     Route: 058
     Dates: start: 202308
  5. ORENCIA [Suspect]
     Active Substance: ABATACEPT
     Route: 058
     Dates: start: 202308
  6. ORENCIA [Suspect]
     Active Substance: ABATACEPT
     Route: 058
  7. ORENCIA [Suspect]
     Active Substance: ABATACEPT
     Route: 058
  8. ORENCIA [Suspect]
     Active Substance: ABATACEPT
     Route: 058

REACTIONS (3)
  - Device failure [Unknown]
  - Device operational issue [Unknown]
  - Product dose omission issue [Unknown]
